FAERS Safety Report 8990335 (Version 1)
Quarter: 2012Q4

REPORT INFORMATION
  Report Type: 
  Country: DK (occurrence: CA)
  Receive Date: 20121228
  Receipt Date: 20121228
  Transmission Date: 20130627
  Serious: Yes (Other)
  Sender: FDA-Public Use
  Company Number: CA-FRI-1000041283

PATIENT
  Sex: Female

DRUGS (3)
  1. ESCITALOPRAM [Suspect]
     Indication: ANXIETY
     Dosage: 10 mg
     Route: 048
     Dates: start: 201211, end: 201211
  2. LEXAPRO [Concomitant]
     Indication: ANXIETY
     Route: 048
     Dates: end: 201211
  3. LEXAPRO [Concomitant]
     Route: 048
     Dates: start: 201211

REACTIONS (2)
  - Convulsion [Recovered/Resolved]
  - Dyspepsia [Recovered/Resolved]
